FAERS Safety Report 4336633-0 (Version None)
Quarter: 2004Q2

REPORT INFORMATION
  Report Type: 
  Country: None (occurrence: None)
  Receive Date: 20040412
  Receipt Date: 20040405
  Transmission Date: 20050107
  Serious: Yes (Hospitalization)
  Sender: FDA-Public Use
  Company Number: US-MERCK-0404USA00407

PATIENT
  Age: 63 Year
  Sex: Male

DRUGS (6)
  1. FOLTX [Concomitant]
     Route: 065
  2. CYPROHEPTADINE HYDROCHLORIDE [Concomitant]
     Route: 065
  3. ENBREL [Concomitant]
     Route: 065
  4. ALLEGRA [Concomitant]
     Route: 065
  5. METHOTREXATE [Concomitant]
     Route: 065
  6. ZOCOR [Suspect]
     Indication: BLOOD CHOLESTEROL INCREASED
     Route: 048
     Dates: start: 20031201, end: 20040301

REACTIONS (2)
  - DELUSIONAL DISORDER, PERSECUTORY TYPE [None]
  - HALLUCINATION, AUDITORY [None]
